FAERS Safety Report 19952388 (Version 1)
Quarter: 2021Q4

REPORT INFORMATION
  Report Type: Other
  Country: CA (occurrence: CA)
  Receive Date: 20211014
  Receipt Date: 20211014
  Transmission Date: 20220303
  Serious: Yes (Hospitalization)
  Sender: FDA-Public Use
  Company Number: CA-CELLTRION INC.-2021CA013712

PATIENT

DRUGS (19)
  1. RITUXIMAB [Suspect]
     Active Substance: RITUXIMAB
     Indication: Product used for unknown indication
     Route: 065
  2. MAVIK [Suspect]
     Active Substance: TRANDOLAPRIL
     Indication: Hypertension
     Dosage: 2 MILLIGRAM, 1 EVERY 1 DAY
     Route: 048
  3. SOLIRIS [Suspect]
     Active Substance: ECULIZUMAB
     Indication: Atypical haemolytic uraemic syndrome
     Dosage: 1200 MILLIGRAM
     Route: 042
  4. AMLODIPINE [Concomitant]
     Active Substance: AMLODIPINE BESYLATE
     Indication: Hypertension
     Dosage: 2.5 MILLIGRAM, 1 EVERY 1 DAY
     Route: 048
  5. BETA-CAROTENE/COPPER SULFATE/DL-ALPHA TOCOPHERYL ACETATE/GLUTATHIONE/M [Concomitant]
     Indication: Steroid therapy
     Dosage: 1 EVERY 1 DAY
     Route: 048
  6. CALCIUM CARBONATE\CHOLECALCIFEROL [Concomitant]
     Active Substance: CALCIUM CARBONATE\CHOLECALCIFEROL
     Indication: Supplementation therapy
     Dosage: 500 MILLIGRAM, 2 EVERY 1 DAY
     Route: 048
  7. CHOLESTYRAMINE [Concomitant]
     Active Substance: CHOLESTYRAMINE
     Indication: Hypertension
     Dosage: 40 MILLIGRAM, 1 EVERY 1 DAY
     Route: 048
  8. ESOMEPRAZOLE. [Concomitant]
     Active Substance: ESOMEPRAZOLE MAGNESIUM
     Indication: Prophylaxis against gastrointestinal ulcer
     Dosage: 40 MILLIGRAM, 1 EVERY 1 DAY
     Route: 048
  9. FOLIC ACID [Concomitant]
     Active Substance: FOLIC ACID
     Indication: Supplementation therapy
     Dosage: 5 MILLIGRAM
     Route: 048
  10. FERROUS SULFATE ANHYDROUS [Concomitant]
     Active Substance: FERROUS SULFATE ANHYDROUS
     Indication: Supplementation therapy
     Route: 048
  11. METHOTREXATE [Concomitant]
     Active Substance: METHOTREXATE
     Indication: Immunosuppression
     Dosage: 10 MILLIGRAM, 2 EVERY 1 DAY
     Route: 048
  12. NICOTINE [Concomitant]
     Active Substance: NICOTINE
     Indication: Smoking cessation therapy
     Route: 065
  13. PREDNISONE [Concomitant]
     Active Substance: PREDNISONE
     Indication: Steroid therapy
     Route: 048
  14. PREGABALIN [Concomitant]
     Active Substance: PREGABALIN
     Indication: Pain
     Dosage: 50 MILLIGRAM, 1 EVERY 1 DAY
     Route: 048
  15. TOVIAZ [Concomitant]
     Active Substance: FESOTERODINE FUMARATE
     Dosage: 4 MILLIGRAM, 1 EVERY 1 DAY
     Route: 048
  16. VITAMIN D [Concomitant]
     Active Substance: VITAMIN D NOS
     Indication: Supplementation therapy
     Dosage: 1000 IU (INTERNATIONAL UNIT), 1 EVERY 1 WEEK
     Route: 048
  17. PREDNISONE [Concomitant]
     Active Substance: PREDNISONE
     Indication: Steroid therapy
     Dosage: 1 MILLIGRAM
     Route: 048
  18. ZANTAC [Concomitant]
     Active Substance: RANITIDINE HYDROCHLORIDE
     Dosage: UNK
     Route: 048
  19. ZOPICLONE [Concomitant]
     Active Substance: ZOPICLONE
     Dosage: 7.5 MILLIGRAM, 1 EVERY 1 DAY
     Route: 048

REACTIONS (19)
  - Condition aggravated [Not Recovered/Not Resolved]
  - Dry skin [Not Recovered/Not Resolved]
  - Eczema [Not Recovered/Not Resolved]
  - Feeling hot [Not Recovered/Not Resolved]
  - Hyperaesthesia [Not Recovered/Not Resolved]
  - Productive cough [Not Recovered/Not Resolved]
  - Skin burning sensation [Not Recovered/Not Resolved]
  - Skin exfoliation [Not Recovered/Not Resolved]
  - Skin lesion [Not Recovered/Not Resolved]
  - Skin plaque [Not Recovered/Not Resolved]
  - Sputum discoloured [Not Recovered/Not Resolved]
  - Blood pressure decreased [Not Recovered/Not Resolved]
  - Bronchitis [Not Recovered/Not Resolved]
  - Erythema [Not Recovered/Not Resolved]
  - Fatigue [Not Recovered/Not Resolved]
  - Papule [Not Recovered/Not Resolved]
  - Pruritus [Not Recovered/Not Resolved]
  - Rash [Not Recovered/Not Resolved]
  - Urinary tract infection [Not Recovered/Not Resolved]
